FAERS Safety Report 5150791-X (Version None)
Quarter: 2006Q4

REPORT INFORMATION
  Report Type: 
  Country: None (occurrence: None)
  Receive Date: 20061108
  Receipt Date: 20061023
  Transmission Date: 20070319
  Serious: Yes (Death)
  Sender: FDA-Public Use
  Company Number: 2006EU002889

PATIENT
  Age: 83 Year
  Sex: Male

DRUGS (4)
  1. VESICARE [Suspect]
     Indication: MICTURITION URGENCY
     Dosage: 5 MG, UID/QD, ORAL
     Route: 048
     Dates: start: 20061001
  2. OMNIC OCAS (TAMSULOSIN HYDROCHLORIDE) [Concomitant]
  3. DUTASTERIDE (DUTASTERIDE) [Concomitant]
  4. ANTIHYPERTENSIVES [Concomitant]

REACTIONS (2)
  - CEREBRAL HAEMORRHAGE [None]
  - SUDDEN DEATH [None]
